FAERS Safety Report 4538766-2 (Version None)
Quarter: 2004Q4

REPORT INFORMATION
  Report Type: 
  Country: None (occurrence: None)
  Receive Date: 20041222
  Receipt Date: 20041216
  Transmission Date: 20050328
  Serious: Yes (Life-Threatening, Hospitalization)
  Sender: FDA-Public Use
  Company Number: FABR-10923

PATIENT
  Age: 48 Year
  Sex: Male
  Weight: 86.4 kg

DRUGS (1)
  1. FABRAZYME [Suspect]
     Indication: FABRY'S DISEASE
     Dosage: 1 MG/KG Q2WKS  IV
     Route: 042
     Dates: start: 20030917

REACTIONS (3)
  - HYPOCALCAEMIA [None]
  - PSYCHOTIC DISORDER [None]
  - RENAL FAILURE [None]
